FAERS Safety Report 10895256 (Version 1)
Quarter: 2015Q1

REPORT INFORMATION
  Report Type: Spontaneous
  Country: US (occurrence: US)
  Receive Date: 20150306
  Receipt Date: 20150306
  Transmission Date: 20150721
  Serious: No
  Sender: FDA-Public Use
  Company Number: US-AMGEN-USASP2014032072

PATIENT
  Age: 11 Year
  Sex: Male
  Weight: 47.7 kg

DRUGS (5)
  1. DDAVP                              /00361901/ [Concomitant]
     Indication: ENURESIS
     Dosage: 0.3 MG, QD
     Route: 048
  2. ENBREL [Suspect]
     Active Substance: ETANERCEPT
     Indication: RHEUMATOID ARTHRITIS
     Dosage: 37.5 MG, QWK
     Route: 058
     Dates: start: 20130908, end: 20140329
  3. NEUROTIN                           /00949202/ [Concomitant]
     Active Substance: ACETYLCARNITINE HYDROCHLORIDE
     Indication: PAIN
     Dosage: 100 MG, TID
     Route: 048
  4. CELEBREX [Concomitant]
     Active Substance: CELECOXIB
     Indication: ARTHRITIS
     Dosage: 200 MG, BID
     Route: 048
  5. ROBAXIN [Concomitant]
     Active Substance: METHOCARBAMOL
     Indication: PAIN
     Dosage: 750 MG, QD
     Route: 048

REACTIONS (8)
  - Pain [Recovered/Resolved]
  - Injection site erythema [Recovered/Resolved]
  - Weight bearing difficulty [Recovered/Resolved]
  - Injection site swelling [Recovered/Resolved]
  - Swelling [Recovered/Resolved]
  - Oedema peripheral [Recovered/Resolved]
  - Erythema [Recovered/Resolved]
  - Injection site pain [Recovered/Resolved]

NARRATIVE: CASE EVENT DATE: 201403
